FAERS Safety Report 5206252-2 (Version None)
Quarter: 2007Q1

REPORT INFORMATION
  Report Type: 
  Country: None (occurrence: None)
  Receive Date: 20070111
  Receipt Date: 20070109
  Transmission Date: 20070707
  Serious: Yes (Life-Threatening, Hospitalization)
  Sender: FDA-Public Use
  Company Number: CN-SHR-CN-2007-000852

PATIENT
  Age: 63 Year
  Sex: Male
  Weight: 60 kg

DRUGS (2)
  1. ULTRAVIST 300 [Suspect]
     Dosage: 80 ML, 1 DOSE
     Route: 040
     Dates: start: 20070109, end: 20070109
  2. IODINE [Concomitant]
     Indication: PREMEDICATION
     Dosage: 1 ML, 1 DOSE
     Route: 042
     Dates: start: 20070109, end: 20070109

REACTIONS (8)
  - BLOOD PRESSURE DECREASED [None]
  - CHEST PAIN [None]
  - CONVULSION [None]
  - CYANOSIS [None]
  - FAECAL INCONTINENCE [None]
  - NAUSEA [None]
  - URINARY INCONTINENCE [None]
  - VOMITING [None]
